FAERS Safety Report 4703120-7 (Version None)
Quarter: 2005Q2

REPORT INFORMATION
  Report Type: 
  Country: None (occurrence: None)
  Receive Date: 20050629
  Receipt Date: 20050621
  Transmission Date: 20051028
  Serious: Yes (Other)
  Sender: FDA-Public Use
  Company Number: PE-GLAXOSMITHKLINE-A0564138A

PATIENT
  Age: 33 Year
  Sex: Female

DRUGS (2)
  1. LAMICTAL [Suspect]
     Indication: DEPRESSION
     Route: 048
     Dates: start: 20041220, end: 20050517
  2. CITALOPRAM [Concomitant]
     Dosage: 20MG PER DAY
     Dates: start: 20050307

REACTIONS (3)
  - ALLERGIC BRONCHITIS [None]
  - APHTHOUS STOMATITIS [None]
  - KERATITIS [None]
